FAERS Safety Report 9031394 (Version 1)
Quarter: 2013Q1

REPORT INFORMATION
  Report Type: Spontaneous
  Country: US (occurrence: US)
  Receive Date: 20130124
  Receipt Date: 20130124
  Transmission Date: 20140127
  Serious: Yes (Other)
  Sender: FDA-Public Use
  Company Number: US-PFIZER INC-2013028618

PATIENT
  Age: 56 Year
  Sex: Female
  Weight: 59.86 kg

DRUGS (9)
  1. LYRICA [Suspect]
     Indication: FIBROMYALGIA
     Dosage: 150 MG, 3X/DAY
     Route: 048
     Dates: start: 2005, end: 2010
  2. LYRICA [Suspect]
     Dosage: 150 MG, 3X/DAY
     Route: 048
     Dates: start: 2010
  3. EFFEXOR [Suspect]
     Dosage: 25 MG, 2X/DAY
     Route: 048
     Dates: start: 2010, end: 2010
  4. LISINOPRIL [Suspect]
     Indication: HYPERTENSION
     Dosage: 12.5 MG, 2X/DAY
     Dates: start: 2010, end: 2010
  5. CYTOTEC [Concomitant]
     Dosage: 200 MG, 2X/DAY
  6. VOLTAREN [Concomitant]
     Dosage: 75 MG, 2X/DAY
  7. COREG [Concomitant]
     Dosage: 12.5 MG, 2X/DAY
  8. PRILOSEC [Concomitant]
     Dosage: 20 MG, 1X/DAY
  9. HYDROCHLOROTHIAZIDE [Concomitant]
     Dosage: 25 MG, 1X/DAY

REACTIONS (9)
  - Hypertension [Unknown]
  - Foot deformity [Recovered/Resolved]
  - Blood sodium decreased [Unknown]
  - Visual impairment [Not Recovered/Not Resolved]
  - Pain in extremity [Recovered/Resolved]
  - Muscle spasms [Recovered/Resolved]
  - Limb discomfort [Recovered/Resolved]
  - Pain [Recovered/Resolved]
  - Weight increased [Not Recovered/Not Resolved]
